FAERS Safety Report 25889316 (Version 1)
Quarter: 2025Q4

REPORT INFORMATION
  Report Type: Report from Study
  Country: IN (occurrence: IN)
  Receive Date: 20251007
  Receipt Date: 20251007
  Transmission Date: 20260117
  Serious: Yes (Other)
  Sender: DAIICHI
  Company Number: IN-AstraZeneca-CH-00960546A

PATIENT
  Age: 56 Year
  Sex: Female
  Weight: 74 kg

DRUGS (1)
  1. ENHERTU [Suspect]
     Active Substance: FAM-TRASTUZUMAB DERUXTECAN-NXKI
     Indication: Product used for unknown indication
     Dosage: 300 MG, ONCE EVERY 3 WK
     Route: 042

REACTIONS (6)
  - Neuropathy peripheral [Recovering/Resolving]
  - Taste disorder [Recovering/Resolving]
  - Asthenia [Recovering/Resolving]
  - Constipation [Recovering/Resolving]
  - Nausea [Recovering/Resolving]
  - Abdominal distension [Recovering/Resolving]
